FAERS Safety Report 8118534-5 (Version None)
Quarter: 2012Q1

REPORT INFORMATION
  Report Type: 
  Country: None (occurrence: None)
  Receive Date: 20120207
  Receipt Date: 20120123
  Transmission Date: 20120608
  Serious: Yes (Hospitalization)
  Sender: FDA-Public Use
  Company Number: JP-PFIZER INC-2011283033

PATIENT
  Age: 79 Year
  Sex: Female

DRUGS (5)
  1. LISINOPRIL [Concomitant]
     Dosage: UNK
     Dates: start: 20101012
  2. NIKORANMART [Concomitant]
     Dosage: UNK
     Dates: start: 20100926
  3. LIPITOR [Suspect]
     Dosage: 10 MG, DAILY
     Route: 048
     Dates: start: 20100926
  4. ASPIRIN [Suspect]
     Dosage: 1 DF, UNK
     Route: 065
     Dates: start: 20101012
  5. AMITRIPTYLINE HCL [Suspect]
     Dosage: 1DF, DAILY
     Route: 065
     Dates: end: 20111025

REACTIONS (2)
  - PANCREATIC NEOPLASM [None]
  - HEPATIC FUNCTION ABNORMAL [None]
